FAERS Safety Report 24535432 (Version 1)
Quarter: 2024Q4

REPORT INFORMATION
  Report Type: Spontaneous
  Country: ES (occurrence: ES)
  Receive Date: 20241022
  Receipt Date: 20241022
  Transmission Date: 20250114
  Serious: Yes (Other)
  Sender: SK LIFE SCIENCE
  Company Number: ES-ACRAF SpA-2024-035928

PATIENT

DRUGS (4)
  1. XCOPRI [Suspect]
     Active Substance: CENOBAMATE
     Indication: Epilepsy
     Dosage: UNKN (400 MG,1 D)
     Route: 065
     Dates: start: 202311
  2. KEPPRA [Concomitant]
     Active Substance: LEVETIRACETAM
     Indication: Product used for unknown indication
     Dosage: UNKN (1500 MG,1 D)
     Route: 065
  3. CLOBAZAM [Concomitant]
     Active Substance: CLOBAZAM
     Indication: Product used for unknown indication
     Dosage: UNKN (10 MG,1 D)
     Route: 065
  4. FYCOMPA [Concomitant]
     Active Substance: PERAMPANEL
     Indication: Product used for unknown indication
     Dosage: FYCOMPA 4 MG EVERY OTHER DAY (4 MG,1 IN 2 D)
     Route: 065

REACTIONS (3)
  - Angiomyofibroblastoma [Not Recovered/Not Resolved]
  - Gynaecomastia [Not Recovered/Not Resolved]
  - Breast hyperplasia [Not Recovered/Not Resolved]

NARRATIVE: CASE EVENT DATE: 20240801
